FAERS Safety Report 9643415 (Version 2)
Quarter: 2013Q4

REPORT INFORMATION
  Report Type: Spontaneous
  Country: FR (occurrence: None)
  Receive Date: 20131022
  Receipt Date: 20131028
  Transmission Date: 20140711
  Serious: Yes (Hospitalization)
  Sender: FDA-Public Use
  Company Number: ACO_39105_2013

PATIENT
  Age: 64 Year
  Sex: Female

DRUGS (2)
  1. FAMPYRA [Suspect]
     Indication: GAIT DISTURBANCE
     Route: 048
     Dates: start: 20130610, end: 201310
  2. BETAFERON (INTERFERON BETA-1B) [Concomitant]

REACTIONS (1)
  - Myocardial infarction [None]
